FAERS Safety Report 7592708-4 (Version None)
Quarter: 2011Q3

REPORT INFORMATION
  Report Type: 
  Country: None (occurrence: None)
  Receive Date: 20110706
  Receipt Date: 20110630
  Transmission Date: 20111222
  Serious: No
  Sender: FDA-Public Use
  Company Number: US-PFIZER INC-2011147563

PATIENT
  Sex: Male

DRUGS (2)
  1. PHENOBARBITAL TAB [Suspect]
     Dosage: UNK
     Route: 064
  2. DILANTIN-125 [Suspect]
     Dosage: UNK
     Route: 064

REACTIONS (2)
  - AFFECTIVE DISORDER [None]
  - MATERNAL EXPOSURE DURING PREGNANCY [None]
